FAERS Safety Report 17173562 (Version 1)
Quarter: 2019Q4

REPORT INFORMATION
  Report Type: Spontaneous
  Country: JP (occurrence: JP)
  Receive Date: 20191218
  Receipt Date: 20191218
  Transmission Date: 20200122
  Serious: Yes (Other)
  Sender: FDA-Public Use
  Company Number: JP-BAXTER-2019BAX025631

PATIENT
  Age: 18 Year
  Sex: Male

DRUGS (17)
  1. MANNITOL. [Suspect]
     Active Substance: MANNITOL
     Indication: PRODUCT USED FOR UNKNOWN INDICATION
     Route: 065
     Dates: start: 20190724, end: 20190729
  2. CELLTOP 100 MG/5 ML, SOLUTION INJECTABLE POUR PERFUSION [Suspect]
     Active Substance: ETOPOSIDE
     Dosage: 3RD CYCLE OF ICE THERAPY
     Route: 065
     Dates: start: 20190925, end: 20190929
  3. GLYCERIN-FRUCTOSE [Suspect]
     Active Substance: FRUCTOSE\GLYCERIN
     Indication: PRODUCT USED FOR UNKNOWN INDICATION
     Route: 065
     Dates: start: 20190722, end: 20190727
  4. GASTER [Suspect]
     Active Substance: FAMOTIDINE
     Indication: PRODUCT USED FOR UNKNOWN INDICATION
     Route: 065
     Dates: start: 20190722, end: 20190809
  5. EMEND [Suspect]
     Active Substance: APREPITANT
     Route: 065
     Dates: start: 20190725, end: 20190726
  6. UROMITEXAN 400 MG [Suspect]
     Active Substance: MESNA
     Indication: PRODUCT USED FOR UNKNOWN INDICATION
     Route: 065
     Dates: start: 20190724, end: 20190729
  7. CISPLATIN. [Suspect]
     Active Substance: CISPLATIN
     Dosage: 3RD CYCLE OF ICE THERAPY
     Route: 065
     Dates: start: 20190925, end: 20190929
  8. RAMOSETRON HYDROCHLORIDE [Suspect]
     Active Substance: RAMOSETRON HYDROCHLORIDE
     Indication: PRODUCT USED FOR UNKNOWN INDICATION
     Route: 065
     Dates: start: 20190724, end: 20190729
  9. HOLOXAN [Suspect]
     Active Substance: IFOSFAMIDE
     Indication: PINEAL GERMINOMA
     Dosage: 1ST CYCLE OF ICE THERAPY, TOTAL DOSE: 4.5 G/M2 HIGH DOSE
     Route: 042
     Dates: start: 20190724, end: 20190729
  10. CELLTOP 100 MG/5 ML, SOLUTION INJECTABLE POUR PERFUSION [Suspect]
     Active Substance: ETOPOSIDE
     Dosage: 2ND CYCLE OF ICE THERAPY
     Route: 065
     Dates: start: 20190826, end: 20190830
  11. DESMOPRESSIN [Suspect]
     Active Substance: DESMOPRESSIN
     Indication: PRODUCT USED FOR UNKNOWN INDICATION
     Route: 065
     Dates: start: 20190724
  12. CISPLATIN. [Suspect]
     Active Substance: CISPLATIN
     Indication: PINEAL GERMINOMA
     Dosage: 1ST CYCLE OF ICE THERAPY
     Route: 065
     Dates: start: 20190724, end: 20190729
  13. HOLOXAN [Suspect]
     Active Substance: IFOSFAMIDE
     Dosage: 2ND CYCLE OF ICE THERAPY, DOSE REDUCED
     Route: 042
     Dates: start: 20190826, end: 20190830
  14. HOLOXAN [Suspect]
     Active Substance: IFOSFAMIDE
     Dosage: 3RD CYCLE OF ICE THERAPY, DOSE REDUCED
     Route: 042
     Dates: start: 20190925, end: 20190929
  15. CISPLATIN. [Suspect]
     Active Substance: CISPLATIN
     Dosage: 2ND CYCLE OF ICE THERAPY
     Route: 065
     Dates: start: 20190826, end: 20190830
  16. EMEND [Suspect]
     Active Substance: APREPITANT
     Indication: PRODUCT USED FOR UNKNOWN INDICATION
     Route: 065
     Dates: start: 20190724, end: 20190724
  17. CELLTOP 100 MG/5 ML, SOLUTION INJECTABLE POUR PERFUSION [Suspect]
     Active Substance: ETOPOSIDE
     Indication: PINEAL GERMINOMA
     Dosage: 1ST CYCLE OF ICE THERAPY
     Route: 065
     Dates: start: 20190724, end: 20190729

REACTIONS (1)
  - Toxic encephalopathy [Recovering/Resolving]

NARRATIVE: CASE EVENT DATE: 20190727
